FAERS Safety Report 7474982-8 (Version None)
Quarter: 2011Q2

REPORT INFORMATION
  Report Type: 
  Country: None (occurrence: None)
  Receive Date: 20110512
  Receipt Date: 20110506
  Transmission Date: 20111010
  Serious: Yes (Other)
  Sender: FDA-Public Use
  Company Number: US-SANOFI-AVENTIS-2011SA028520

PATIENT
  Age: 59 Year
  Sex: Male

DRUGS (4)
  1. LANTUS [Suspect]
     Indication: TYPE 2 DIABETES MELLITUS
     Dosage: 65-70 UNITS
     Route: 058
  2. LANTUS [Suspect]
     Dosage: 50-55 UNITS
     Route: 058
  3. OPTICLICK [Suspect]
     Indication: TYPE 2 DIABETES MELLITUS
  4. NOVOLOG [Concomitant]
     Indication: BLOOD GLUCOSE INCREASED

REACTIONS (2)
  - HYPOGLYCAEMIA [None]
  - CORONARY ARTERIAL STENT INSERTION [None]
